FAERS Safety Report 17048156 (Version 1)
Quarter: 2019Q4

REPORT INFORMATION
  Report Type: Spontaneous
  Country: US (occurrence: US)
  Receive Date: 20191119
  Receipt Date: 20191119
  Transmission Date: 20200122
  Serious: No
  Sender: FDA-Public Use
  Company Number: US-PFIZER INC-2019496657

PATIENT
  Age: 43 Year
  Sex: Male
  Weight: 115 kg

DRUGS (1)
  1. ATORVASTATIN CALCIUM. [Suspect]
     Active Substance: ATORVASTATIN CALCIUM
     Indication: BLOOD CHOLESTEROL INCREASED
     Dosage: 40 MG, 1X/DAY (ONE TABLET ONCE A DAY AT BED TIME)
     Route: 048

REACTIONS (1)
  - Rash [Not Recovered/Not Resolved]
